FAERS Safety Report 7016737-4 (Version None)
Quarter: 2010Q3

REPORT INFORMATION
  Report Type: 
  Country: None (occurrence: None)
  Receive Date: 20100927
  Receipt Date: 20100915
  Transmission Date: 20110219
  Serious: Yes (Other)
  Sender: FDA-Public Use
  Company Number: US-WYE-H17573610

PATIENT
  Sex: Female
  Weight: 72.64 kg

DRUGS (6)
  1. EFFEXOR XR [Suspect]
     Indication: ANGER
     Dates: end: 20100913
  2. EFFEXOR XR [Suspect]
     Indication: EMOTIONAL DISORDER
     Dates: start: 20100915
  3. ACIPHEX [Concomitant]
     Dosage: UNKNOWN
     Dates: end: 20100901
  4. PROMETRIUM [Concomitant]
     Dosage: 300 MG, FREQUENCY UNKNOWN
  5. VIVELLE [Concomitant]
     Dosage: UNKNOWN
     Route: 062
  6. VICODIN [Concomitant]
     Dosage: UNKNOWN DOSE AS NEEDED

REACTIONS (5)
  - BALANCE DISORDER [None]
  - COLONOSCOPY [None]
  - CRYING [None]
  - DRUG WITHDRAWAL SYNDROME [None]
  - PARAESTHESIA [None]
